FAERS Safety Report 5915717-7 (Version None)
Quarter: 2008Q4

REPORT INFORMATION
  Report Type: 
  Country: None (occurrence: None)
  Receive Date: 20081010
  Receipt Date: 20080930
  Transmission Date: 20090506
  Serious: Yes (Death)
  Sender: FDA-Public Use
  Company Number: US-PFIZER INC-2008073619

PATIENT
  Sex: Male
  Weight: 80.7 kg

DRUGS (16)
  1. SUTENT [Suspect]
     Indication: METASTATIC RENAL CELL CARCINOMA
     Dosage: DAILY DOSE:50MG-FREQ:1 PER DAY FOR 28 DAYS/ OFF 14 DAYS
     Route: 048
     Dates: start: 20080616
  2. PROSCAR [Concomitant]
  3. LOPERAMIDE HCL [Concomitant]
  4. VICODIN [Concomitant]
     Dosage: TEXT:5/500-FREQ:ONE EVERY FOUR HOURS, AS NEEDED
  5. MEGACE [Concomitant]
  6. TYLENOL (CAPLET) [Concomitant]
  7. LAXATIVES [Concomitant]
  8. OXYCONTIN [Concomitant]
  9. WARFARIN SODIUM [Concomitant]
     Dosage: FREQ:AS DIRECTED
  10. LEXAPRO [Concomitant]
  11. COMPAZINE [Concomitant]
  12. OXYCODONE HCL [Concomitant]
  13. REMERON [Concomitant]
  14. REGLAN [Concomitant]
  15. ACIPHEX [Concomitant]
  16. ZOFRAN [Concomitant]

REACTIONS (2)
  - DISEASE PROGRESSION [None]
  - RENAL CELL CARCINOMA [None]
